FAERS Safety Report 10775981 (Version 1)
Quarter: 2015Q1

REPORT INFORMATION
  Report Type: Spontaneous
  Country: FR (occurrence: FR)
  Receive Date: 20150209
  Receipt Date: 20150209
  Transmission Date: 20150721
  Serious: Yes (Other)
  Sender: FDA-Public Use
  Company Number: FR-PFIZER INC-2015051282

PATIENT
  Age: 29 Year
  Sex: Female

DRUGS (15)
  1. PROFENID [Suspect]
     Active Substance: KETOPROFEN
     Indication: COCHLEA IMPLANT
     Dosage: 100 MG, UNK
     Dates: start: 20140604, end: 20140604
  2. PNEUMO 23 [Suspect]
     Active Substance: PNEUMOCOCCAL VACCINE, POLYVALENT 23
     Indication: COCHLEA IMPLANT
     Dosage: UNK
     Route: 030
  3. MORPHINE SULFATE. [Suspect]
     Active Substance: MORPHINE SULFATE
     Indication: COCHLEA IMPLANT
     Dosage: UNK
     Dates: start: 20140604, end: 20140604
  4. EPHEDRINE [Suspect]
     Active Substance: EPHEDRINE
     Indication: COCHLEA IMPLANT
     Dosage: 6 MG, UNK
     Dates: start: 20140604, end: 20140604
  5. PRIMPERAN [Suspect]
     Active Substance: METOCLOPRAMIDE HYDROCHLORIDE
     Indication: COCHLEA IMPLANT
     Dosage: UNK
     Dates: start: 20140604, end: 20140604
  6. PROPOFOL. [Suspect]
     Active Substance: PROPOFOL
     Indication: COCHLEA IMPLANT
     Dosage: 1862 MG, UNK
     Dates: start: 20140604, end: 20140604
  7. LIDOCAINE. [Suspect]
     Active Substance: LIDOCAINE
     Indication: COCHLEA IMPLANT
     Dosage: 30 MG, UNK
     Dates: start: 20140604, end: 20140604
  8. TRAMADOL BASICS [Suspect]
     Active Substance: TRAMADOL
     Indication: COCHLEA IMPLANT
     Dosage: UNK
     Dates: start: 20140604, end: 20140604
  9. SOLU-MEDROL [Suspect]
     Active Substance: METHYLPREDNISOLONE SODIUM SUCCINATE
     Indication: COCHLEA IMPLANT
     Dosage: UNK
     Dates: start: 20140604, end: 20140604
  10. ZOPHREN [Suspect]
     Active Substance: ONDANSETRON
     Indication: COCHLEA IMPLANT
     Dosage: UNK
     Dates: start: 20140604, end: 20140604
  11. PERFALGAN [Suspect]
     Active Substance: ACETAMINOPHEN
     Indication: COCHLEA IMPLANT
     Dosage: 1000 MG, UNK
     Dates: start: 20140604, end: 20140604
  12. DROPERIDOL. [Suspect]
     Active Substance: DROPERIDOL
     Indication: COCHLEA IMPLANT
     Dosage: 1.25 MG, UNK
     Dates: start: 20140604, end: 20140604
  13. REMIFENTANIL HYDROCHLORIDE [Suspect]
     Active Substance: REMIFENTANIL HYDROCHLORIDE
     Indication: COCHLEA IMPLANT
     Dosage: 1.26 MG, UNK
     Dates: start: 20140604, end: 20140604
  14. NEFOPAM HYDROCHLORIDE [Suspect]
     Active Substance: NEFOPAM HYDROCHLORIDE
     Indication: COCHLEA IMPLANT
     Dosage: UNK
     Dates: start: 20140604, end: 20140604
  15. AUGMENTIN [Suspect]
     Active Substance: AMOXICILLIN\CLAVULANATE POTASSIUM
     Indication: COCHLEA IMPLANT
     Dosage: UNK
     Dates: start: 20140604, end: 20140604

REACTIONS (2)
  - Foetal death [Not Recovered/Not Resolved]
  - Exposure during pregnancy [None]
